FAERS Safety Report 9191711 (Version 1)
Quarter: 2013Q1

REPORT INFORMATION
  Report Type: Spontaneous
  Country: GB (occurrence: GB)
  Receive Date: 20130326
  Receipt Date: 20130326
  Transmission Date: 20140127
  Serious: Yes (Hospitalization, Disabling, Other)
  Sender: FDA-Public Use
  Company Number: GB-B.I. PHARMACEUTICALS,INC./RIDGEFIELD-2013-UK-00423UK

PATIENT
  Age: 85 Year
  Sex: Male
  Weight: 75 kg

DRUGS (7)
  1. PRADAXA [Suspect]
     Indication: ATRIAL FIBRILLATION
     Dosage: 220 MG
     Route: 048
     Dates: start: 20120913, end: 20121102
  2. CYCLIZINE [Concomitant]
  3. DIGOXIN [Concomitant]
  4. METFORMIN [Concomitant]
  5. PIOGLITAZONE [Concomitant]
  6. SIMVASTATIN [Concomitant]
  7. RIVAROXABAN [Concomitant]

REACTIONS (4)
  - Hepatic cyst [Recovered/Resolved]
  - Faecal incontinence [Recovered/Resolved]
  - Diarrhoea [Unknown]
  - Nausea [Unknown]
